FAERS Safety Report 12841188 (Version 3)
Quarter: 2016Q4

REPORT INFORMATION
  Report Type: Report from Study
  Country: US (occurrence: US)
  Receive Date: 20161012
  Receipt Date: 20161130
  Transmission Date: 20170207
  Serious: Yes (Other)
  Sender: FDA-Public Use
  Company Number: US-BAYER-2016-170797

PATIENT
  Age: 66 Year
  Sex: Male

DRUGS (1)
  1. STIVARGA [Suspect]
     Active Substance: REGORAFENIB
     Indication: COLORECTAL CANCER
     Dosage: 120 MG DAILY DOSE FOR 2 WEEKS ON AND 1 WEEKS OFF
     Route: 048
     Dates: start: 20160823

REACTIONS (14)
  - Haemoglobin decreased [None]
  - Off label use [None]
  - Fatigue [None]
  - Dehydration [None]
  - Diarrhoea [None]
  - Dysphonia [None]
  - Fatigue [Not Recovered/Not Resolved]
  - Myalgia [None]
  - Haemoglobin decreased [None]
  - Cough [None]
  - White blood cell count decreased [None]
  - Productive cough [None]
  - Headache [None]
  - Pain [None]

NARRATIVE: CASE EVENT DATE: 201608
